FAERS Safety Report 16540201 (Version 1)
Quarter: 2019Q3

REPORT INFORMATION
  Report Type: Spontaneous
  Country: US (occurrence: US)
  Receive Date: 20190708
  Receipt Date: 20190708
  Transmission Date: 20191004
  Serious: No
  Sender: FDA-Public Use
  Company Number: US-MYLANLABS-2019M1061104

PATIENT
  Sex: Female

DRUGS (1)
  1. IPRATROPIUM,SALBUTAMOL MYLAN [Suspect]
     Active Substance: ALBUTEROL\IPRATROPIUM
     Indication: ASTHMA
     Dosage: UNK

REACTIONS (1)
  - Drug ineffective [Unknown]
